FAERS Safety Report 18398149 (Version 1)
Quarter: 2020Q4

REPORT INFORMATION
  Report Type: Spontaneous
  Country: US (occurrence: US)
  Receive Date: 20201019
  Receipt Date: 20201019
  Transmission Date: 20210114
  Serious: No
  Sender: FDA-Public Use
  Company Number: None

PATIENT
  Age: 89 Year
  Sex: Female

DRUGS (1)
  1. PIQRAY [Suspect]
     Active Substance: ALPELISIB
     Route: 048
     Dates: start: 202008

REACTIONS (4)
  - Fall [None]
  - Blood glucose increased [None]
  - Pneumonia [None]
  - Pericardial effusion [None]

NARRATIVE: CASE EVENT DATE: 20200901
